FAERS Safety Report 7807925-5 (Version None)
Quarter: 2011Q4

REPORT INFORMATION
  Report Type: 
  Country: None (occurrence: None)
  Receive Date: 20111011
  Receipt Date: 20111011
  Transmission Date: 20120403
  Serious: Yes (Hospitalization)
  Sender: FDA-Public Use
  Company Number: None

PATIENT
  Age: 52 Year
  Sex: Male
  Weight: 122.46 kg

DRUGS (1)
  1. PRADAXA [Suspect]
     Indication: COAGULOPATHY
     Dosage: 150 MG
     Route: 048
     Dates: start: 20101227, end: 20110302

REACTIONS (9)
  - QUALITY OF LIFE DECREASED [None]
  - ERUCTATION [None]
  - MUSCLE SPASMS [None]
  - OESOPHAGEAL ULCER [None]
  - OESOPHAGEAL DISORDER [None]
  - CHEST DISCOMFORT [None]
  - CHEST PAIN [None]
  - HEADACHE [None]
  - ABDOMINAL DISCOMFORT [None]
